FAERS Safety Report 4331635-2 (Version None)
Quarter: 2004Q2

REPORT INFORMATION
  Report Type: 
  Country: None (occurrence: None)
  Receive Date: 20040405
  Receipt Date: 20031013
  Transmission Date: 20050107
  Serious: Yes (Hospitalization)
  Sender: FDA-Public Use
  Company Number: US-MERCK-0310USA01566

PATIENT
  Age: 69 Year
  Sex: Female

DRUGS (5)
  1. CARDIZEM CD [Concomitant]
     Route: 065
  2. ZETIA [Suspect]
     Indication: HYPERCHOLESTEROLAEMIA
     Route: 048
     Dates: start: 20030320, end: 20030401
  3. ZESTORETIC [Concomitant]
     Route: 048
  4. HUMALOG [Concomitant]
     Route: 065
  5. ISMO [Concomitant]
     Route: 065

REACTIONS (8)
  - ARTHRITIS [None]
  - DERMATITIS EXFOLIATIVE [None]
  - DIABETES MELLITUS [None]
  - GOUT [None]
  - JOINT SWELLING [None]
  - OEDEMA PERIPHERAL [None]
  - SENSORY DISTURBANCE [None]
  - TREMOR [None]
